FAERS Safety Report 5132939-6 (Version None)
Quarter: 2006Q4

REPORT INFORMATION
  Report Type: 
  Country: None (occurrence: None)
  Receive Date: 20061017
  Receipt Date: 20060919
  Transmission Date: 20070319
  Serious: Yes (Hospitalization, Other)
  Sender: FDA-Public Use
  Company Number: RB-4097-2006

PATIENT
  Age: 32 Year
  Sex: Female

DRUGS (3)
  1. SUBUTEX [Suspect]
     Indication: DEPENDENCE
     Dosage: DOSAGE UNKNOWN
     Route: 048
     Dates: start: 20031215
  2. ACETAMINOPHEN W/ CODEINE [Suspect]
     Indication: DRUG USE FOR UNKNOWN INDICATION
     Dosage: DOSAGE UNKNOWN
     Route: 048
  3. OMEPRAZOLE [Suspect]
     Indication: DRUG USE FOR UNKNOWN INDICATION
     Dosage: DOSAGE UNKNOWN

REACTIONS (3)
  - CONDITION AGGRAVATED [None]
  - HAEMOLYTIC ANAEMIA [None]
  - MACROCYTOSIS [None]
